FAERS Safety Report 11732498 (Version 1)
Quarter: 2015Q4

REPORT INFORMATION
  Report Type: Spontaneous
  Country: US (occurrence: US)
  Receive Date: 20151113
  Receipt Date: 20151113
  Transmission Date: 20160304
  Serious: No
  Sender: FDA-Public Use
  Company Number: US-ASTRAZENECA-2015SF09283

PATIENT
  Sex: Male

DRUGS (3)
  1. DOXYCYCLINE HYDROCHLORIDE [Suspect]
     Active Substance: DOXYCYCLINE HYDROCHLORIDE
     Indication: DEPRESSION
     Dosage: UNK, DAILY (AT NIGHT)
     Route: 065
  2. NEXIUM 24HR [Suspect]
     Active Substance: ESOMEPRAZOLE MAGNESIUM
     Dosage: UNK, DAILY (30 MINUTES BEFORE BREAKFAST FOR 7 DAYS)
     Route: 048
  3. NEXIUM [Suspect]
     Active Substance: ESOMEPRAZOLE MAGNESIUM
     Dosage: UNK
     Route: 048

REACTIONS (2)
  - Insomnia [Unknown]
  - Intentional product misuse [Unknown]
